FAERS Safety Report 9104126 (Version 1)
Quarter: 2013Q1

REPORT INFORMATION
  Report Type: Spontaneous
  Country: BR (occurrence: BR)
  Receive Date: 20130219
  Receipt Date: 20130219
  Transmission Date: 20140127
  Serious: Yes (Other)
  Sender: FDA-Public Use
  Company Number: PHHY2013BR015308

PATIENT
  Sex: Male

DRUGS (1)
  1. TEGRETOL CR [Suspect]
     Dosage: 1 DF, 5QD
     Dates: start: 2011

REACTIONS (1)
  - Brain neoplasm [Recovering/Resolving]
